FAERS Safety Report 10364471 (Version 1)
Quarter: 2014Q3

REPORT INFORMATION
  Report Type: Spontaneous
  Country: US (occurrence: None)
  Receive Date: 20140804
  Receipt Date: 20140804
  Transmission Date: 20150326
  Serious: Yes (Hospitalization)
  Sender: FDA-Public Use
  Company Number: None

PATIENT
  Age: 49 Year
  Sex: Female
  Weight: 49.9 kg

DRUGS (1)
  1. RECLAST [Suspect]
     Active Substance: ZOLEDRONIC ACID
     Indication: OSTEOPOROSIS
     Dosage: INTO A VEIN

REACTIONS (11)
  - Bone pain [None]
  - Dyspnoea [None]
  - Dizziness [None]
  - Dysstasia [None]
  - Arthralgia [None]
  - Blood magnesium decreased [None]
  - Back pain [None]
  - Chest pain [None]
  - Malaise [None]
  - Nausea [None]
  - Vomiting [None]

NARRATIVE: CASE EVENT DATE: 20140729
